FAERS Safety Report 8462003-X (Version None)
Quarter: 2012Q2

REPORT INFORMATION
  Report Type: 
  Country: None (occurrence: None)
  Receive Date: 20120625
  Receipt Date: 20120615
  Transmission Date: 20120825
  Serious: Yes (Hospitalization, Other)
  Sender: FDA-Public Use
  Company Number: US-JNJFOC-20110608969

PATIENT
  Age: 12 Year
  Sex: Female

DRUGS (8)
  1. METHADON HCL TAB [Concomitant]
  2. REMICADE [Suspect]
     Indication: PRODUCT USED FOR UNKNOWN INDICATION
     Route: 042
     Dates: start: 20061219, end: 20080522
  3. SERTRALINE HYDROCHLORIDE [Concomitant]
  4. CLONAZEPAM [Concomitant]
  5. BETAMETHASONE DIPROPIONATE [Concomitant]
     Dates: start: 20060328, end: 20060404
  6. PREDNISONE TAB [Concomitant]
     Dates: start: 20050915, end: 20091120
  7. METHYLPEDNISOLONE SODIUM SUCCINATE [Concomitant]
     Dates: start: 20061204, end: 20080522
  8. TRAZODONE HCL [Concomitant]

REACTIONS (1)
  - PROGRESSIVE MULTIFOCAL LEUKOENCEPHALOPATHY [None]
